FAERS Safety Report 17082925 (Version 2)
Quarter: 2020Q1

REPORT INFORMATION
  Report Type: Report from Study
  Country: GB (occurrence: GB)
  Receive Date: 20191127
  Receipt Date: 20200316
  Transmission Date: 20200409
  Serious: Yes (Hospitalization)
  Sender: FDA-Public Use
  Company Number: GB-BEIGENE AUS PTY LTD-BGN-2019-001837

PATIENT

DRUGS (7)
  1. ZANUBRUTINIB [Suspect]
     Active Substance: ZANUBRUTINIB
     Indication: CHRONIC LYMPHOCYTIC LEUKAEMIA
     Dosage: 160 MILLIGRAM, BID
     Route: 048
     Dates: start: 20191002
  2. RAMIPRIL. [Concomitant]
     Active Substance: RAMIPRIL
     Indication: HYPERTENSION
     Dosage: 2.5 MILLIGRAM
     Dates: start: 20170310, end: 20200210
  3. BETAHISTINE [Concomitant]
     Active Substance: BETAHISTINE
     Indication: MENIERE^S DISEASE
     Dosage: 16 MILLIGRAM
     Dates: start: 201410
  4. CINNARIZINE [Concomitant]
     Active Substance: CINNARIZINE
     Indication: MENIERE^S DISEASE
     Dosage: 15 MILLIGRAM
     Dates: start: 20141027, end: 20200210
  5. GTN [Concomitant]
     Active Substance: NITROGLYCERIN
     Indication: MYOCARDIAL INFARCTION
     Dosage: 400 MILLIGRAM
     Dates: start: 20170310
  6. TRAMADOL. [Concomitant]
     Active Substance: TRAMADOL
     Indication: ANALGESIC THERAPY
     Dosage: 50 MILLIGRAM
     Dates: start: 201410
  7. ASPIRIN. [Concomitant]
     Active Substance: ASPIRIN
     Indication: MYOCARDIAL INFARCTION
     Dosage: 75 MILLIGRAM
     Dates: start: 20170310

REACTIONS (2)
  - Pyrexia [Recovered/Resolved]
  - Gastritis viral [Recovered/Resolved]

NARRATIVE: CASE EVENT DATE: 20191020
